FAERS Safety Report 20161017 (Version 1)
Quarter: 2021Q4

REPORT INFORMATION
  Report Type: Spontaneous
  Country: US (occurrence: US)
  Receive Date: 20211208
  Receipt Date: 20211208
  Transmission Date: 20220303
  Serious: No
  Sender: FDA-Public Use
  Company Number: US-ORGANON-O2112USA000285

PATIENT
  Age: 23 Year
  Sex: Female
  Weight: 86.077 kg

DRUGS (1)
  1. NEXPLANON [Suspect]
     Active Substance: ETONOGESTREL
     Dosage: 1 IMPLANT IN LEFT ARM

REACTIONS (2)
  - Device issue [Unknown]
  - Complication of device removal [Unknown]

NARRATIVE: CASE EVENT DATE: 20211129
